FAERS Safety Report 21252886 (Version 1)
Quarter: 2022Q3

REPORT INFORMATION
  Report Type: Spontaneous
  Country: US (occurrence: US)
  Receive Date: 20220825
  Receipt Date: 20220825
  Transmission Date: 20221026
  Serious: Yes (Other)
  Sender: FDA-Public Use
  Company Number: US-BAYER-2022A113637

PATIENT
  Age: 61 Year

DRUGS (1)
  1. ALEVE [Suspect]
     Active Substance: NAPROXEN SODIUM
     Indication: Product used for unknown indication
     Dosage: UNK
     Route: 065

REACTIONS (7)
  - Pneumonia [None]
  - Chronic obstructive pulmonary disease [Unknown]
  - Thermal burn [None]
  - Limb injury [None]
  - Hand fracture [Not Recovered/Not Resolved]
  - Rib fracture [None]
  - Cough [None]
